FAERS Safety Report 10982976 (Version 1)
Quarter: 2015Q1

REPORT INFORMATION
  Report Type: Spontaneous
  Country: US (occurrence: None)
  Receive Date: 20150302
  Receipt Date: 20150302
  Transmission Date: 20150721
  Serious: Yes (Other)
  Sender: FDA-Public Use
  Company Number: M2014-028

PATIENT
  Age: 27 Year
  Sex: Male

DRUGS (2)
  1. ALLERGENIC EXTRACT NOS [Suspect]
     Active Substance: ALLERGENIC EXTRACTS
     Indication: HYPERSENSITIVITY
     Dosage: 0.50CC/INJECTION?
     Dates: start: 20141010
  2. ALLERGENIC EXTRACT NOS [Suspect]
     Active Substance: ALLERGENIC EXTRACTS
     Dosage: 0.50CC/INJECTION?
     Dates: start: 20141010

REACTIONS (4)
  - Injection site warmth [None]
  - Swelling [None]
  - Pruritus [None]
  - Erythema [None]

NARRATIVE: CASE EVENT DATE: 20141010
